FAERS Safety Report 20876832 (Version 4)
Quarter: 2023Q1

REPORT INFORMATION
  Report Type: Report from Study
  Country: CA (occurrence: CA)
  Receive Date: 20220526
  Receipt Date: 20230104
  Transmission Date: 20230418
  Serious: Yes (Death, Hospitalization)
  Sender: FDA-Public Use
  Company Number: CA-NOVARTISPH-NVSC2021CA196704

PATIENT
  Age: 41 Year
  Sex: Female

DRUGS (3)
  1. COSENTYX [Suspect]
     Active Substance: SECUKINUMAB
     Indication: Psoriasis
     Dosage: 300 MG, QMO
     Route: 058
     Dates: start: 20200702, end: 20211030
  2. BETAMETHASONE\CALCIPOTRIENE [Concomitant]
     Active Substance: BETAMETHASONE\CALCIPOTRIENE
     Indication: Product used for unknown indication
     Dosage: UNK
     Route: 061
  3. BETADERM [Concomitant]
     Active Substance: BETAMETHASONE VALERATE
     Indication: Product used for unknown indication
     Dosage: UNK
     Route: 061

REACTIONS (12)
  - Fall [Fatal]
  - Psoriasis [Unknown]
  - Rash macular [Unknown]
  - Inflammation [Unknown]
  - Skin plaque [Unknown]
  - Pruritus [Unknown]
  - Pain of skin [Unknown]
  - Cellulitis [Unknown]
  - Wound [Unknown]
  - Wound infection [Unknown]
  - Emotional distress [Unknown]
  - Malaise [Unknown]

NARRATIVE: CASE EVENT DATE: 20220101
